FAERS Safety Report 16388280 (Version 6)
Quarter: 2019Q4

REPORT INFORMATION
  Report Type: Spontaneous
  Country: US (occurrence: US)
  Receive Date: 20190604
  Receipt Date: 20191024
  Transmission Date: 20200122
  Serious: Yes (Hospitalization)
  Sender: FDA-Public Use
  Company Number: US-PFIZER INC-2018478461

PATIENT
  Age: 76 Year
  Sex: Female
  Weight: 87.75 kg

DRUGS (3)
  1. IBRANCE [Suspect]
     Active Substance: PALBOCICLIB
     Indication: NEOPLASM MALIGNANT
  2. LETROZOLE. [Concomitant]
     Active Substance: LETROZOLE
     Dosage: 2.5 MG, DAILY
     Dates: start: 2018
  3. IBRANCE [Suspect]
     Active Substance: PALBOCICLIB
     Indication: BREAST CANCER FEMALE
     Dosage: 125 MG, CYCLIC (1 A DAY ON 3 WEEKS, OFF 1 WEEK)
     Dates: start: 201804

REACTIONS (4)
  - Fatigue [Unknown]
  - Cognitive disorder [Not Recovered/Not Resolved]
  - Product dose omission [Unknown]
  - Malaise [Unknown]
